FAERS Safety Report 24256826 (Version 4)
Quarter: 2024Q3

REPORT INFORMATION
  Report Type: Spontaneous
  Country: US (occurrence: US)
  Receive Date: 20240828
  Receipt Date: 20240919
  Transmission Date: 20241016
  Serious: No
  Sender: Haleon PLC
  Company Number: US-HALEON-2193966

PATIENT

DRUGS (1)
  1. ALLI [Suspect]
     Active Substance: ORLISTAT
     Indication: Product used for unknown indication
     Dosage: EXPDATE:20250731 EXPDATE:20260731

REACTIONS (2)
  - Headache [Unknown]
  - Product complaint [Unknown]
